FAERS Safety Report 23251086 (Version 3)
Quarter: 2023Q4

REPORT INFORMATION
  Report Type: Spontaneous
  Country: US (occurrence: US)
  Receive Date: 20231201
  Receipt Date: 20231227
  Transmission Date: 20240109
  Serious: No
  Sender: FDA-Public Use
  Company Number: US-PFIZER INC-202300391876

PATIENT
  Age: 15 Year
  Sex: Male

DRUGS (1)
  1. GENOTROPIN [Suspect]
     Active Substance: SOMATROPIN
     Dosage: UNK, DAILY, (1.8 ALTERNATING 2.0MG)

REACTIONS (6)
  - Drug dose omission by device [Unknown]
  - Device breakage [Unknown]
  - Device leakage [Unknown]
  - Device issue [Unknown]
  - Device defective [Unknown]
  - Device use error [Unknown]

NARRATIVE: CASE EVENT DATE: 20231117
